FAERS Safety Report 13322262 (Version 1)
Quarter: 2017Q1

REPORT INFORMATION
  Report Type: Spontaneous
  Country: US (occurrence: US)
  Receive Date: 20170309
  Receipt Date: 20170309
  Transmission Date: 20170428
  Serious: No
  Sender: FDA-Public Use
  Company Number: US-PFIZER INC-2017098888

PATIENT
  Age: 59 Year
  Sex: Male
  Weight: 72.97 kg

DRUGS (1)
  1. VIAGRA [Suspect]
     Active Substance: SILDENAFIL CITRATE
     Indication: SEXUAL DYSFUNCTION
     Dosage: 100 MG, AS NEEDED (ONE EVERY MONTH OR ONE TWO MONTH)
     Route: 048

REACTIONS (3)
  - Intentional product misuse [Unknown]
  - Erythema [Unknown]
  - Drug ineffective [Unknown]
